FAERS Safety Report 4696798-8 (Version None)
Quarter: 2005Q2

REPORT INFORMATION
  Report Type: 
  Country: None (occurrence: None)
  Receive Date: 20050127
  Receipt Date: 20050127
  Transmission Date: 20051028
  Serious: No
  Sender: FDA-Public Use
  Company Number: None

PATIENT
  Sex: Female

DRUGS (2)
  1. LASIX [Suspect]
     Indication: CARDIAC FAILURE CONGESTIVE
     Dosage: 20MG PO QD
     Route: 048
  2. LASIX [Suspect]
     Indication: OEDEMA
     Dosage: 20MG PO QD
     Route: 048

REACTIONS (1)
  - DRUG EFFECT DECREASED [None]
